FAERS Safety Report 6663525-4 (Version None)
Quarter: 2010Q2

REPORT INFORMATION
  Report Type: 
  Country: None (occurrence: None)
  Receive Date: 20100401
  Receipt Date: 20100325
  Transmission Date: 20101027
  Serious: Yes (Other)
  Sender: FDA-Public Use
  Company Number: US-BRISTOL-MYERS SQUIBB COMPANY-15034325

PATIENT
  Age: 40 Year
  Sex: Male
  Weight: 122 kg

DRUGS (7)
  1. ABILIFY [Suspect]
     Indication: BIPOLAR DISORDER
     Dosage: TAKING ABILIFY  FOR 6 MONTHS
  2. METHADONE [Concomitant]
  3. TEGRETOL [Concomitant]
  4. GABAPENTIN [Concomitant]
  5. EFFEXOR [Concomitant]
  6. ADDERALL 30 [Concomitant]
  7. TEMAZEPAM [Concomitant]

REACTIONS (1)
  - DERMATITIS PSORIASIFORM [None]
